FAERS Safety Report 13298634 (Version 1)
Quarter: 2017Q1

REPORT INFORMATION
  Report Type: Spontaneous
  Country: US (occurrence: US)
  Receive Date: 20170306
  Receipt Date: 20170306
  Transmission Date: 20170428
  Serious: No
  Sender: FDA-Public Use
  Company Number: US-BAYER-2017-040532

PATIENT
  Sex: Male
  Weight: 59.86 kg

DRUGS (7)
  1. BAYER ASPIRIN [Suspect]
     Active Substance: ASPIRIN
     Indication: HEADACHE
  2. LISINOPRIL. [Concomitant]
     Active Substance: LISINOPRIL
  3. MULTIVITAMIN [Concomitant]
     Active Substance: VITAMINS
  4. BAYER LOW DOSE [Suspect]
     Active Substance: ASPIRIN
     Indication: CARDIAC DISORDER
  5. BAYER AM EXTRA STENGTH [Suspect]
     Active Substance: ASPIRIN\CAFFEINE
     Indication: PAIN
     Dosage: 1 DF, EVERY 2-3 DAYS
     Route: 048
  6. BAYER LOW DOSE [Suspect]
     Active Substance: ASPIRIN
     Indication: PROPHYLAXIS
     Dosage: 1 DF, UNK
     Route: 065
  7. BAYER ASPIRIN [Suspect]
     Active Substance: ASPIRIN
     Indication: PAIN
     Dosage: 1 DF, EVERY 2-3 DAYS
     Route: 048

REACTIONS (1)
  - Off label use [Unknown]
